FAERS Safety Report 9322900 (Version 2)
Quarter: 2014Q1

REPORT INFORMATION
  Report Type: Spontaneous
  Country: US (occurrence: US)
  Receive Date: 20130601
  Receipt Date: 20140103
  Transmission Date: 20141002
  Serious: Yes (Hospitalization, Disabling, Other)
  Sender: FDA-Public Use
  Company Number: US-ASTRAZENECA-2013SE38663

PATIENT
  Age: 62 Year
  Sex: Female
  Weight: 63.5 kg

DRUGS (8)
  1. NEXIUM [Suspect]
     Indication: GASTROOESOPHAGEAL REFLUX DISEASE
     Route: 048
     Dates: start: 200508, end: 201208
  2. NEXIUM [Suspect]
     Indication: GASTROOESOPHAGEAL REFLUX DISEASE
     Route: 048
     Dates: start: 20051206
  3. TUMS [Concomitant]
     Dosage: AS NEEDED
     Dates: start: 2005
  4. SIMVASTATIN [Concomitant]
     Indication: BLOOD CHOLESTEROL INCREASED
  5. LEVOTHYROXINE [Concomitant]
     Indication: THYROID DISORDER
  6. ZOLPIDEM [Concomitant]
     Indication: SLEEP DISORDER
  7. ASPIRIN [Concomitant]
  8. TRAZADONE [Concomitant]

REACTIONS (7)
  - Arthropathy [Unknown]
  - Lower limb fracture [Unknown]
  - Skin cancer [Unknown]
  - Femur fracture [Unknown]
  - Osteoporosis [Unknown]
  - Bone disorder [Unknown]
  - Meniscus injury [Unknown]
